FAERS Safety Report 25617117 (Version 1)
Quarter: 2025Q3

REPORT INFORMATION
  Report Type: Spontaneous
  Country: US (occurrence: None)
  Receive Date: 20250728
  Receipt Date: 20250728
  Transmission Date: 20251021
  Serious: Yes (Death)
  Sender: FDA-CTU
  Company Number: None

PATIENT
  Age: 66 Year
  Sex: Male

DRUGS (12)
  1. MYCOPHENOLIC ACID [Suspect]
     Active Substance: MYCOPHENOLIC ACID
     Indication: Renal transplant
     Dosage: FREQUENCY : TWICE A DAY;?
     Route: 048
  2. Astagraf XL [Concomitant]
     Indication: Renal transplant
     Dosage: FREQUENCY : DAILY;?
     Route: 048
  3. PREDNISONE [Concomitant]
     Active Substance: PREDNISONE
  4. CLOPIDOGREL [Concomitant]
     Active Substance: CLOPIDOGREL BISULFATE
  5. AMIODARONE [Concomitant]
     Active Substance: AMIODARONE
  6. ATORVASTATIN [Concomitant]
     Active Substance: ATORVASTATIN
  7. ELIQUIS [Concomitant]
     Active Substance: APIXABAN
  8. FAMOTIDINE [Concomitant]
     Active Substance: FAMOTIDINE
  9. FREESTYLE LIBRE 14DAY SENSOR [Concomitant]
  10. FUROSEMIDE [Concomitant]
     Active Substance: FUROSEMIDE
  11. midodrine 2.5mg [Concomitant]
  12. NOVOLOG FLEXPEN INJ 3ML (ORANGE) [Concomitant]

REACTIONS (1)
  - Death [None]
